FAERS Safety Report 22274261 (Version 2)
Quarter: 2023Q4

REPORT INFORMATION
  Report Type: Spontaneous
  Country: CA (occurrence: CA)
  Receive Date: 20230502
  Receipt Date: 20231024
  Transmission Date: 20240110
  Serious: Yes (Other)
  Sender: FDA-Public Use
  Company Number: CA-Covis Pharma Europe B.V.-2023COV01031

PATIENT

DRUGS (3)
  1. OMNARIS [Suspect]
     Active Substance: CICLESONIDE
     Route: 065
  2. OMALIZUMAB [Suspect]
     Active Substance: OMALIZUMAB
     Indication: Chronic spontaneous urticaria
     Route: 058
  3. HYDROCORTISONE [Suspect]
     Active Substance: HYDROCORTISONE

REACTIONS (2)
  - Urticaria [Unknown]
  - Therapeutic response decreased [Unknown]
